FAERS Safety Report 26102178 (Version 1)
Quarter: 2025Q4

REPORT INFORMATION
  Report Type: Spontaneous
  Country: EU (occurrence: EU)
  Receive Date: 20251128
  Receipt Date: 20251128
  Transmission Date: 20260117
  Serious: Yes (Congenital Anomaly)
  Sender: BAUSCH AND LOMB
  Company Number: EU-EMB-M202406859-1

PATIENT
  Sex: Female

DRUGS (7)
  1. AZATHIOPRINE [Suspect]
     Active Substance: AZATHIOPRINE
     Indication: Colitis ulcerative
     Route: 064
     Dates: start: 202312, end: 202408
  2. MESALAMINE [Suspect]
     Active Substance: MESALAMINE
     Indication: Colitis ulcerative
     Route: 064
     Dates: start: 202312, end: 202408
  3. PROGESTERONE [Suspect]
     Active Substance: PROGESTERONE
     Indication: Haemorrhage in pregnancy
     Route: 064
     Dates: start: 202404, end: 202408
  4. MAGNESIUM ASPARTATE HYDROCHLORIDE [Concomitant]
     Active Substance: MAGNESIUM ASPARTATE HYDROCHLORIDE
     Indication: Placenta praevia
     Dosage: POSSIBLY ALREADY FROM GW 15
     Route: 064
     Dates: start: 202405, end: 202408
  5. GAVISCON [Concomitant]
     Active Substance: ALUMINUM HYDROXIDE\MAGNESIUM CARBONATE
     Indication: Gastrooesophageal reflux disease
     Dosage: TWICE IN PREGNANCY
     Route: 064
  6. URSODIOL [Concomitant]
     Active Substance: URSODIOL
     Indication: Cholestasis of pregnancy
     Route: 064
  7. BOOSTRIX [Concomitant]
     Active Substance: TETANUS TOXOID, REDUCED DIPHTHERIA TOXOID AND ACELLULAR PERTUSSIS VACCINE ADSORBED, TDAP
     Indication: Immunisation
     Route: 064
     Dates: start: 202408, end: 202408

REACTIONS (4)
  - Atrial septal defect [Recovered/Resolved]
  - Congenital coronary artery malformation [Not Recovered/Not Resolved]
  - Pectus excavatum [Recovering/Resolving]
  - Foetal exposure during pregnancy [Unknown]

NARRATIVE: CASE EVENT DATE: 20240801
